FAERS Safety Report 17830729 (Version 1)
Quarter: 2020Q2

REPORT INFORMATION
  Report Type: Spontaneous
  Country: US (occurrence: US)
  Receive Date: 20200527
  Receipt Date: 20200527
  Transmission Date: 20200714
  Serious: Yes (Death)
  Sender: FDA-Public Use
  Company Number: US-ALLERGAN-200301474

PATIENT
  Sex: Female
  Weight: 59.09 kg

DRUGS (13)
  1. ROBAXIN [Concomitant]
     Active Substance: METHOCARBAMOL
     Dosage: 750MG, BID
     Route: 048
     Dates: end: 20030124
  2. AZMACORT [Concomitant]
     Active Substance: TRIAMCINOLONE ACETONIDE
     Route: 065
     Dates: end: 20030124
  3. BABY ASPIRIN [Concomitant]
     Active Substance: ASPIRIN
     Route: 048
     Dates: end: 20030124
  4. OXYCODONE [Concomitant]
     Active Substance: OXYCODONE
     Dosage: 5MG, PRN
     Route: 048
     Dates: end: 20030124
  5. SINGULAIR [Concomitant]
     Active Substance: MONTELUKAST SODIUM
     Dosage: DOSE QUANTITY: 10, DOSE UNIT: MG
     Route: 048
     Dates: end: 20030124
  6. ARTEX [Concomitant]
     Active Substance: TERTATOLOL
     Dosage: 10MG, PRN
     Route: 048
     Dates: end: 20030123
  7. ALBUTEROL. [Concomitant]
     Active Substance: ALBUTEROL
     Route: 065
     Dates: end: 20030124
  8. BOTOX [Suspect]
     Active Substance: ONABOTULINUMTOXINA
     Indication: MUSCLE SPASMS
     Dosage: 100 UNITS, SINGLE
     Route: 030
     Dates: start: 20030124, end: 20030124
  9. LIDOCAINE 1% [Suspect]
     Active Substance: LIDOCAINE
     Indication: ANAESTHESIA
     Dosage: 5 ML, SINGLE
     Route: 030
     Dates: start: 20030124, end: 20030124
  10. METHADONE [Concomitant]
     Active Substance: METHADONE HYDROCHLORIDE
     Dosage: 10MG, TID
     Route: 048
     Dates: end: 20030124
  11. BOTOX [Suspect]
     Active Substance: ONABOTULINUMTOXINA
     Indication: MUSCLE RIGIDITY
     Dosage: 100UNITS, PRN
     Route: 030
     Dates: start: 200111, end: 200111
  12. BOTOX [Suspect]
     Active Substance: ONABOTULINUMTOXINA
     Indication: NECK PAIN
  13. LIDOCAINE 1% [Suspect]
     Active Substance: LIDOCAINE
     Dosage: 5 ML, SINGLE
     Route: 030
     Dates: start: 200111, end: 200111

REACTIONS (14)
  - Cardiac arrest [Fatal]
  - Asthenia [Unknown]
  - Dizziness [Unknown]
  - Urinary incontinence [Fatal]
  - Taste disorder [Unknown]
  - Sensory disturbance [Unknown]
  - Off label use [Unknown]
  - Anxiety [Fatal]
  - Anaphylactic reaction [Fatal]
  - Presyncope [Fatal]
  - Respiratory arrest [Fatal]
  - Generalised tonic-clonic seizure [Fatal]
  - Product preparation error [Unknown]
  - Ventricular fibrillation [Fatal]

NARRATIVE: CASE EVENT DATE: 20030124
